FAERS Safety Report 16742643 (Version 2)
Quarter: 2019Q3

REPORT INFORMATION
  Report Type: Spontaneous
  Country: FR (occurrence: FR)
  Receive Date: 20190826
  Receipt Date: 20190826
  Transmission Date: 20191005
  Serious: Yes (Hospitalization)
  Sender: FDA-Public Use
  Company Number: PHHY2019FR193770

PATIENT
  Age: 18 Year
  Sex: Female
  Weight: 48 kg

DRUGS (3)
  1. ATENOLOL. [Suspect]
     Active Substance: ATENOLOL
     Indication: POISONING DELIBERATE
     Dosage: 20 DF, UNK (TOTAL)
     Route: 048
     Dates: start: 20190717, end: 20190717
  2. HYDROCHLOROTHIAZIDE. [Suspect]
     Active Substance: HYDROCHLOROTHIAZIDE
     Indication: POISONING DELIBERATE
     Dosage: 20 DF, UNK (TOTAL)
     Route: 048
     Dates: start: 20190717, end: 20190717
  3. VALSARTAN. [Suspect]
     Active Substance: VALSARTAN
     Indication: POISONING DELIBERATE
     Dosage: 20 DF, UNK (TOTAL)
     Route: 048
     Dates: start: 20190717, end: 20190717

REACTIONS (3)
  - Poisoning deliberate [Recovered/Resolved]
  - Bradycardia [Recovered/Resolved]
  - Hypotension [Recovered/Resolved]

NARRATIVE: CASE EVENT DATE: 20190717
